FAERS Safety Report 13127244 (Version 1)
Quarter: 2017Q1

REPORT INFORMATION
  Report Type: Report from Study
  Country: CA (occurrence: CA)
  Receive Date: 20170118
  Receipt Date: 20170118
  Transmission Date: 20170428
  Serious: Yes (Other)
  Sender: FDA-Public Use
  Company Number: CA-JNJFOC-20170109981

PATIENT
  Age: 37 Year
  Sex: Female
  Weight: 50.7 kg

DRUGS (1)
  1. REMICADE [Suspect]
     Active Substance: INFLIXIMAB
     Indication: CROHN^S DISEASE
     Dosage: NUMBER OF SEPARATE DOSAGES WAS 6
     Route: 042
     Dates: start: 20150804

REACTIONS (4)
  - Off label use [Unknown]
  - Ovarian cyst [Unknown]
  - Product use issue [Unknown]
  - Fistula [Unknown]

NARRATIVE: CASE EVENT DATE: 20150804
